FAERS Safety Report 18033043 (Version 7)
Quarter: 2021Q3

REPORT INFORMATION
  Report Type: Spontaneous
  Country: US (occurrence: US)
  Receive Date: 20200716
  Receipt Date: 20210925
  Transmission Date: 20211014
  Serious: Yes (Hospitalization)
  Sender: FDA-Public Use
  Company Number: US-SA-2020SA183470

PATIENT
  Age: 29 Year
  Sex: Female

DRUGS (2)
  1. DUPIXENT [Suspect]
     Active Substance: DUPILUMAB
     Dosage: 300 MG, QOW
     Route: 058
  2. DUPIXENT [Suspect]
     Active Substance: DUPILUMAB
     Indication: DERMATITIS ATOPIC
     Dosage: 600 MG, 1X
     Route: 058
     Dates: start: 202007, end: 202007

REACTIONS (6)
  - Dry skin [Unknown]
  - Nausea [Unknown]
  - Dandruff [Unknown]
  - Folliculitis [Unknown]
  - Blister [Unknown]
  - Infection [Unknown]

NARRATIVE: CASE EVENT DATE: 202007
